FAERS Safety Report 7215570-8 (Version None)
Quarter: 2011Q1

REPORT INFORMATION
  Report Type: 
  Country: None (occurrence: None)
  Receive Date: 20110107
  Receipt Date: 20110104
  Transmission Date: 20110831
  Serious: Yes (Hospitalization)
  Sender: FDA-Public Use
  Company Number: FR-ROCHE-751508

PATIENT
  Sex: Male
  Weight: 54 kg

DRUGS (13)
  1. PEGINTERFERON ALFA-2A [Suspect]
     Route: 058
     Dates: start: 20100503
  2. EMTRICITABINE [Concomitant]
     Dates: start: 20071121
  3. SUBUTEX [Concomitant]
     Dates: start: 20090720
  4. SUBUTEX [Concomitant]
     Dates: start: 20100309
  5. TEMESTA [Concomitant]
     Dates: start: 20090720
  6. PEGINTERFERON ALFA-2A [Suspect]
     Route: 058
     Dates: start: 20091116
  7. RALTEGRAVIR [Concomitant]
     Dates: start: 20000411
  8. TENOFOVIR DISOPROXIL FUMARATE [Concomitant]
     Dates: start: 20071121
  9. LEXOMIL [Concomitant]
     Dates: start: 20071121
  10. SPIRIVA [Concomitant]
     Dates: start: 20100806
  11. RIBAVIRIN [Suspect]
     Route: 048
     Dates: start: 20091116
  12. VIAGRA [Concomitant]
     Dosage: TDD:25 MG EVERY 2 DAYS
     Dates: start: 20091116
  13. SYMBICORT [Concomitant]
     Dosage: TOTAL DAILY DOSE: 2 SPRAY
     Dates: start: 20100201

REACTIONS (1)
  - CACHEXIA [None]
